FAERS Safety Report 23498455 (Version 3)
Quarter: 2024Q4

REPORT INFORMATION
  Report Type: Report from Study
  Country: US (occurrence: US)
  Receive Date: 20240207
  Receipt Date: 20241009
  Transmission Date: 20250115
  Serious: Yes (Other)
  Sender: ABBVIE
  Company Number: US-ABBVIE-5621582

PATIENT
  Sex: Female

DRUGS (3)
  1. HUMIRA [Suspect]
     Active Substance: ADALIMUMAB
     Indication: Rheumatoid arthritis
     Dosage: FORM STRENGTH: 40 MG?DOSE REDUCED
     Route: 058
     Dates: start: 20230329, end: 20240531
  2. HUMIRA [Suspect]
     Active Substance: ADALIMUMAB
     Dosage: FORM STRENGTH: 40 MG
     Route: 058
  3. HUMIRA [Suspect]
     Active Substance: ADALIMUMAB
     Route: 058

REACTIONS (11)
  - Abortion spontaneous [Unknown]
  - Illness [Recovering/Resolving]
  - Rheumatoid arthritis [Recovering/Resolving]
  - Uterine haemorrhage [Recovered/Resolved]
  - Muscular weakness [Unknown]
  - Uterine haemorrhage [Recovering/Resolving]
  - Stress [Unknown]
  - Maternal exposure during pregnancy [Unknown]
  - Nasopharyngitis [Recovered/Resolved]
  - Hypersensitivity [Recovered/Resolved]
  - Drug ineffective [Unknown]

NARRATIVE: CASE EVENT DATE: 20230101
